FAERS Safety Report 8339082 (Version 2)
Quarter: 2016Q3

REPORT INFORMATION
  Report Type: Spontaneous
  Country: AU (occurrence: AU)
  Receive Date: 20120117
  Receipt Date: 20160930
  Transmission Date: 20161109
  Serious: Yes (Other)
  Sender: FDA-Public Use
  Company Number: AU-PFIZER INC-2012007123

PATIENT
  Age: 8 Year
  Sex: Male

DRUGS (5)
  1. VITAMIN D [Concomitant]
     Active Substance: CHOLECALCIFEROL
  2. PAMIDRONATE DISODIUM. [Suspect]
     Active Substance: PAMIDRONATE DISODIUM
     Indication: OSTEOGENESIS IMPERFECTA
  3. CALCITRIOL. [Suspect]
     Active Substance: CALCITRIOL
     Indication: OSTEOGENESIS IMPERFECTA
  4. PAMIDRONATE DISODIUM. [Suspect]
     Active Substance: PAMIDRONATE DISODIUM
     Indication: MULTIPLE FRACTURES
     Dosage: 30 MG/M2, MONTHLY
     Route: 042
  5. CALCITRIOL. [Suspect]
     Active Substance: CALCITRIOL
     Indication: MULTIPLE FRACTURES
     Dosage: 0.25 MCG TWICE DAILY

REACTIONS (1)
  - Nephrocalcinosis [Recovered/Resolved]
